FAERS Safety Report 22518048 (Version 1)
Quarter: 2023Q2

REPORT INFORMATION
  Report Type: Other
  Country: US (occurrence: US)
  Receive Date: 20230605
  Receipt Date: 20230605
  Transmission Date: 20230722
  Serious: No
  Sender: FDA-Public Use
  Company Number: US-ALVOGEN-2023089479

PATIENT
  Age: 37 Year
  Sex: Female

DRUGS (15)
  1. BUPRENORPHINE [Suspect]
     Active Substance: BUPRENORPHINE
     Indication: Pelvic pain
  2. OXYCODONE [Suspect]
     Active Substance: OXYCODONE
     Indication: Pelvic pain
     Dosage: WEEK 4- 4 TABS FOR 4 DAYS THEN 3 TABS FOR 3 DAYS
  3. OXYCODONE [Suspect]
     Active Substance: OXYCODONE
     Indication: Pelvic pain
     Dosage: WEEK 5- 2.5 TABS FOR 4 DAYS THEN 2 TABS FOR 3 DAYS
  4. OXYCODONE [Suspect]
     Active Substance: OXYCODONE
     Indication: Pelvic pain
     Dosage: WEEK 6 - 1 TAB FOR 4 DAYS THEN DISCONTINUING
  5. PREGABALIN [Suspect]
     Active Substance: PREGABALIN
     Indication: Pelvic pain
  6. NAPROXEN [Suspect]
     Active Substance: NAPROXEN
     Indication: Pelvic pain
  7. AMPHETAMINE\DEXTROAMPHETAMINE [Suspect]
     Active Substance: AMPHETAMINE\DEXTROAMPHETAMINE
     Indication: Attention deficit hyperactivity disorder
  8. BUPRENORPHINE\NALOXONE [Suspect]
     Active Substance: BUPRENORPHINE\NALOXONE
     Indication: Pelvic pain
     Dosage: WEEK 1- 2?0.5 MG SL 1/4 FILM
  9. BUPRENORPHINE\NALOXONE [Suspect]
     Active Substance: BUPRENORPHINE\NALOXONE
     Indication: Pelvic pain
     Dosage: WEEK 2- 2?0.5 MG SL 1/4 FILM
  10. BUPRENORPHINE [Suspect]
     Active Substance: BUPRENORPHINE
     Indication: Pelvic pain
     Dosage: WEEK 3- 2 MG SL 1/2 TABLET
  11. BUPRENORPHINE [Suspect]
     Active Substance: BUPRENORPHINE
     Indication: Pelvic pain
     Dosage: WEEK 4- 2 MG SL 1 TAB WITH NOON 1/2 TABLET?FOR 4 DAYS, THEN 1 TABLET 3 TIMES DAILY FOR 3 DAYS
  12. BUPRENORPHINE [Suspect]
     Active Substance: BUPRENORPHINE
     Indication: Pelvic pain
     Dosage: WEEK 5- 2 MG SL 1 TAB
  13. BUPRENORPHINE [Suspect]
     Active Substance: BUPRENORPHINE
     Indication: Pelvic pain
     Dosage: WEEK 6- 2 MG SL 1 TABLET +1/2 TAB
  14. MORPHINE [Concomitant]
     Active Substance: MORPHINE
     Indication: Pelvic pain
     Dosage: D TAPERED FROM 570 TO 120
  15. MORPHINE [Concomitant]
     Active Substance: MORPHINE
     Indication: Pelvic pain
     Dosage: WEEK 1 - 15 MG PO TWICE DAILY?WEEK 2 - 15 MG PO AT NIGHT

REACTIONS (5)
  - Nausea [Unknown]
  - Insomnia [Unknown]
  - Maternal exposure during pregnancy [Unknown]
  - Wrong technique in product usage process [Unknown]
  - Off label use [Unknown]
